FAERS Safety Report 4578299-0 (Version None)
Quarter: 2005Q1

REPORT INFORMATION
  Report Type: 
  Country: None (occurrence: None)
  Receive Date: 20050209
  Receipt Date: 20050120
  Transmission Date: 20050727
  Serious: Yes (Hospitalization)
  Sender: FDA-Public Use
  Company Number: US_0501111447

PATIENT
  Age: 43 Year
  Sex: Male
  Weight: 98 kg

DRUGS (9)
  1. ZYPREXA [Suspect]
     Dosage: 5 MG/2 DAY
     Dates: start: 19990518
  2. LITHIUM [Concomitant]
  3. BENZTROPINE MESYLATE [Concomitant]
  4. HALOPERIDOL [Concomitant]
  5. LOTENSIN [Concomitant]
  6. ACETYLSALICYLIC ACID SRT [Concomitant]
  7. DIPHENHYDRAMINE HCL [Concomitant]
  8. PAXIL [Concomitant]
  9. SEROQUEL [Concomitant]

REACTIONS (13)
  - DEHYDRATION [None]
  - DIABETES MELLITUS INSULIN-DEPENDENT [None]
  - DIABETIC KETOACIDOSIS [None]
  - DYSPNOEA [None]
  - FACIAL PALSY [None]
  - HYPOGLYCAEMIA [None]
  - LETHARGY [None]
  - NASAL CONGESTION [None]
  - PYREXIA [None]
  - RENAL FAILURE [None]
  - SOMNOLENCE [None]
  - TARDIVE DYSKINESIA [None]
  - TRANSIENT ISCHAEMIC ATTACK [None]
